FAERS Safety Report 22722574 (Version 4)
Quarter: 2025Q1

REPORT INFORMATION
  Report Type: Spontaneous
  Country: JP (occurrence: JP)
  Receive Date: 20230719
  Receipt Date: 20250128
  Transmission Date: 20250408
  Serious: Yes (Death, Life-Threatening)
  Sender: ROCHE
  Company Number: JP-CHUGAI-2023025746AA

PATIENT
  Age: 77 Year
  Sex: Male

DRUGS (1)
  1. GAZYVA [Suspect]
     Active Substance: OBINUTUZUMAB
     Indication: Follicular lymphoma
     Route: 040
     Dates: start: 20230705, end: 20230706

REACTIONS (3)
  - Cytokine release syndrome [Recovering/Resolving]
  - Renal impairment [Recovered/Resolved]
  - Death [Fatal]

NARRATIVE: CASE EVENT DATE: 20230707
